FAERS Safety Report 8005228-X (Version None)
Quarter: 2011Q4

REPORT INFORMATION
  Report Type: 
  Country: None (occurrence: None)
  Receive Date: 20111223
  Receipt Date: 20111221
  Transmission Date: 20120403
  Serious: Yes (Death)
  Sender: FDA-Public Use
  Company Number: PHEH2011US012307

PATIENT
  Sex: Female
  Weight: 65 kg

DRUGS (1)
  1. EXJADE [Suspect]
     Indication: IRON METABOLISM DISORDER
     Dosage: 1500 MG, DAILY
     Route: 048

REACTIONS (1)
  - APLASTIC ANAEMIA [None]
